FAERS Safety Report 7276770-4 (Version None)
Quarter: 2011Q1

REPORT INFORMATION
  Report Type: 
  Country: None (occurrence: None)
  Receive Date: 20110206
  Receipt Date: 20110201
  Transmission Date: 20110831
  Serious: Yes (Hospitalization)
  Sender: FDA-Public Use
  Company Number: JP-BRISTOL-MYERS SQUIBB COMPANY-15504129

PATIENT
  Age: 46 Year
  Sex: Male
  Weight: 61 kg

DRUGS (2)
  1. PARAPLATIN [Suspect]
     Route: 042
     Dates: start: 20101022
  2. TAXOL [Suspect]
     Indication: LUNG CARCINOMA CELL TYPE UNSPECIFIED RECURRENT
     Route: 042
     Dates: start: 20101022

REACTIONS (3)
  - INTERSTITIAL LUNG DISEASE [None]
  - NAUSEA [None]
  - ALOPECIA [None]
